FAERS Safety Report 15433916 (Version 1)
Quarter: 2018Q3

REPORT INFORMATION
  Report Type: Spontaneous
  Country: US (occurrence: US)
  Receive Date: 20180927
  Receipt Date: 20180927
  Transmission Date: 20181010
  Serious: No
  Sender: FDA-Public Use
  Company Number: US-SA-2018SA268128

PATIENT
  Age: 71 Year
  Sex: Female

DRUGS (1)
  1. ALLEGRA ALLERGY [Suspect]
     Active Substance: FEXOFENADINE HYDROCHLORIDE
     Indication: HYPERSENSITIVITY
     Dosage: 180 MG, QD, 1 GELCAP EVERY 24 HO
     Route: 065
     Dates: start: 20180923

REACTIONS (2)
  - Expired product administered [Unknown]
  - Product quality issue [Unknown]
